FAERS Safety Report 16290310 (Version 3)
Quarter: 2019Q2

REPORT INFORMATION
  Report Type: Report from Study
  Country: DE (occurrence: DE)
  Receive Date: 20190509
  Receipt Date: 20190612
  Transmission Date: 20190711
  Serious: No
  Sender: FDA-Public Use
  Company Number: DE-ROCHE-2315087

PATIENT
  Age: 41 Year
  Sex: Female

DRUGS (4)
  1. CORTISONE [Suspect]
     Active Substance: CORTISONE\HYDROCORTISONE
     Indication: PREMEDICATION
     Route: 065
  2. OCREVUS [Suspect]
     Active Substance: OCRELIZUMAB
     Route: 042
     Dates: start: 20190513
  3. CANDESARTAN. [Concomitant]
     Active Substance: CANDESARTAN
  4. OCREVUS [Suspect]
     Active Substance: OCRELIZUMAB
     Indication: RELAPSING-REMITTING MULTIPLE SCLEROSIS
     Route: 042
     Dates: start: 20190429

REACTIONS (6)
  - Limb discomfort [Recovered/Resolved]
  - Somnolence [Recovered/Resolved]
  - Alopecia [Recovered/Resolved]
  - Dizziness [Recovered/Resolved]
  - Nasopharyngitis [Recovered/Resolved]
  - Lymphadenopathy [Recovered/Resolved]

NARRATIVE: CASE EVENT DATE: 20190429
